FAERS Safety Report 9315661 (Version 1)
Quarter: 2013Q2

REPORT INFORMATION
  Report Type: Spontaneous
  Country: FR (occurrence: FR)
  Receive Date: 20130529
  Receipt Date: 20130529
  Transmission Date: 20140414
  Serious: Yes (Hospitalization)
  Sender: FDA-Public Use
  Company Number: FR-B.I. PHARMACEUTICALS,INC./RIDGEFIELD-2013-FF-01423FF

PATIENT
  Age: 45 Year
  Sex: Male

DRUGS (4)
  1. MECIR [Suspect]
     Route: 048
     Dates: start: 20121202, end: 20121203
  2. LEVURE DE RIZ ROUGE (MONASCUS PURPUREUS) [Suspect]
     Route: 048
     Dates: start: 201211, end: 20121203
  3. ZYLORIC [Suspect]
     Dosage: 150 MG
     Route: 048
     Dates: start: 201208, end: 20121203
  4. PARIET [Concomitant]
     Dosage: 20 MG
     Route: 048
     Dates: end: 20121203

REACTIONS (2)
  - Hepatocellular injury [Recovered/Resolved]
  - Urticaria [Recovered/Resolved]
